FAERS Safety Report 24346896 (Version 1)
Quarter: 2024Q3

REPORT INFORMATION
  Report Type: Report from Study
  Country: US (occurrence: US)
  Receive Date: 20240921
  Receipt Date: 20240921
  Transmission Date: 20241017
  Serious: Yes (Other)
  Sender: ABBVIE
  Company Number: US-ABBVIE-5808183

PATIENT
  Sex: Male

DRUGS (6)
  1. SKYRIZI [Suspect]
     Active Substance: RISANKIZUMAB-RZAA
     Indication: Crohn^s disease
     Dosage: STARTING WEEK 12
     Route: 058
     Dates: start: 20240319, end: 202407
  2. VITAMIN B12 [Concomitant]
     Active Substance: CYANOCOBALAMIN
     Indication: Product used for unknown indication
     Route: 048
  3. VITAMIN C [Concomitant]
     Active Substance: ASCORBIC ACID
     Indication: Product used for unknown indication
  4. SKYRIZI [Suspect]
     Active Substance: RISANKIZUMAB-RZAA
     Indication: Crohn^s disease
     Dosage: WEEK 0
     Route: 042
     Dates: start: 20231219, end: 20231219
  5. SKYRIZI [Suspect]
     Active Substance: RISANKIZUMAB-RZAA
     Indication: Crohn^s disease
     Dosage: WEEK 4
     Route: 042
     Dates: start: 20240117, end: 20240117
  6. SKYRIZI [Suspect]
     Active Substance: RISANKIZUMAB-RZAA
     Indication: Crohn^s disease
     Dosage: WEEK 8
     Route: 042
     Dates: start: 20240214, end: 20240214

REACTIONS (15)
  - Vesical fistula [Unknown]
  - Therapeutic product effect decreased [Recovered/Resolved]
  - Faeces soft [Recovered/Resolved]
  - Faeces hard [Recovered/Resolved]
  - Hyperhidrosis [Unknown]
  - Urinary tract infection [Unknown]
  - Urinary tract infection [Recovered/Resolved]
  - Hyperhidrosis [Recovered/Resolved]
  - Urine odour abnormal [Recovered/Resolved]
  - Constipation [Unknown]
  - Urine odour abnormal [Unknown]
  - Abdominal distension [Unknown]
  - Fatigue [Unknown]
  - Crohn^s disease [Unknown]
  - Prostatitis [Recovered/Resolved]

NARRATIVE: CASE EVENT DATE: 20240101
